FAERS Safety Report 4439979-0 (Version None)
Quarter: 2004Q3

REPORT INFORMATION
  Report Type: 
  Country: None (occurrence: None)
  Receive Date: 20040902
  Receipt Date: 20040616
  Transmission Date: 20050211
  Serious: Yes (Hospitalization, Other)
  Sender: FDA-Public Use
  Company Number: FR-BRISTOL-MYERS SQUIBB COMPANY-12617114

PATIENT
  Age: 27 Year
  Sex: Female

DRUGS (3)
  1. VIDEX EC [Suspect]
     Indication: HIV INFECTION
     Route: 048
     Dates: start: 20040130, end: 20040416
  2. VIRACEPT [Concomitant]
     Indication: HIV INFECTION
     Dates: start: 20040130, end: 20040416
  3. RETROVIR [Concomitant]
     Indication: HIV INFECTION
     Dates: start: 20040130

REACTIONS (10)
  - ALANINE AMINOTRANSFERASE INCREASED [None]
  - ANAEMIA [None]
  - ANOREXIA [None]
  - ASPARTATE AMINOTRANSFERASE INCREASED [None]
  - BLOOD BILIRUBIN INCREASED [None]
  - FOETAL DISTRESS SYNDROME [None]
  - GASTROINTESTINAL DISORDER [None]
  - NAUSEA [None]
  - PREGNANCY [None]
  - PREMATURE BABY [None]
